FAERS Safety Report 9402038 (Version 2)
Quarter: 2013Q3

REPORT INFORMATION
  Report Type: Spontaneous
  Country: VE (occurrence: VE)
  Receive Date: 20130716
  Receipt Date: 20130725
  Transmission Date: 20140515
  Serious: Yes (Other)
  Sender: FDA-Public Use
  Company Number: PHHY2013VE074371

PATIENT
  Age: 74 Year
  Sex: Female

DRUGS (8)
  1. TEGRETOL [Suspect]
     Indication: TRIGEMINAL NEURALGIA
     Dosage: 200 MG, ONCE A DAY
     Route: 048
     Dates: start: 2010, end: 20130710
  2. TEGRETOL [Suspect]
     Dosage: INCREASED DOSE
  3. TEGRETOL [Suspect]
     Dosage: INCREADED DOSE, TID
     Route: 048
     Dates: start: 20130717
  4. HYZAAR [Concomitant]
     Indication: TENSION
  5. OMEPRAZOLE [Concomitant]
     Indication: GASTRIC DISORDER
  6. CALCIBON D [Concomitant]
     Indication: OSTEOPOROSIS
  7. COZAAR [Concomitant]
     Indication: HYPERTENSION
     Dosage: UNK UKN, UNK
  8. OMEPRAZOL//OMEPRAZOLE MAGNESIUM [Concomitant]
     Indication: HELICOBACTER GASTRITIS
     Dosage: UNK UKN, UNK

REACTIONS (3)
  - Hypoaesthesia [Not Recovered/Not Resolved]
  - Hypoaesthesia oral [Not Recovered/Not Resolved]
  - Hypoaesthesia eye [Not Recovered/Not Resolved]
